FAERS Safety Report 5256150-3 (Version None)
Quarter: 2007Q1

REPORT INFORMATION
  Report Type: 
  Country: None (occurrence: None)
  Receive Date: 20070306
  Receipt Date: 20070301
  Transmission Date: 20070707
  Serious: Yes (Death, Other)
  Sender: FDA-Public Use
  Company Number: US-BRISTOL-MYERS SQUIBB COMPANY-13466941

PATIENT
  Age: 69 Year
  Sex: Male

DRUGS (6)
  1. CETUXIMAB [Suspect]
     Indication: NON-SMALL CELL LUNG CANCER
     Dosage: 1ST DOSE: 27APR06
     Route: 042
     Dates: start: 20060713, end: 20060713
  2. CARBOPLATIN [Suspect]
     Indication: NON-SMALL CELL LUNG CANCER
     Dosage: 1ST DOSE: 27APR06
     Route: 042
     Dates: start: 20060629, end: 20060629
  3. TAXOL [Suspect]
     Indication: NON-SMALL CELL LUNG CANCER
     Dosage: 1ST DOSE: 27APR06
     Route: 042
     Dates: start: 20060629, end: 20060629
  4. PREDNISONE [Concomitant]
     Dates: start: 20060725, end: 20060803
  5. LOVENOX [Concomitant]
     Dates: start: 20060718, end: 20060803
  6. OXYGEN [Concomitant]
     Route: 045
     Dates: start: 20060718, end: 20060803

REACTIONS (2)
  - CARDIAC ARREST [None]
  - MALIGNANT NEOPLASM PROGRESSION [None]
